FAERS Safety Report 4479767-2 (Version None)
Quarter: 2004Q4

REPORT INFORMATION
  Report Type: 
  Country: None (occurrence: None)
  Receive Date: 20041015
  Receipt Date: 20040930
  Transmission Date: 20050328
  Serious: Yes (Life-Threatening)
  Sender: FDA-Public Use
  Company Number: 2003AP03223

PATIENT
  Age: 61 Year
  Sex: Female

DRUGS (11)
  1. IRESSA [Suspect]
     Indication: LUNG ADENOCARCINOMA
     Dosage: 250 MG DAILY PO
     Route: 048
     Dates: start: 20020903, end: 20030415
  2. IRESSA [Suspect]
     Indication: LUNG ADENOCARCINOMA
     Dosage: 250 MG DAILY PO
     Route: 048
     Dates: start: 20030514, end: 20030527
  3. IRESSA [Suspect]
     Indication: LUNG ADENOCARCINOMA
     Dosage: 250 MG DAILY PO
     Route: 048
     Dates: start: 20030604, end: 20030610
  4. IRESSA [Suspect]
     Indication: LUNG ADENOCARCINOMA
     Dosage: 125 MG DAILY PO
     Route: 048
     Dates: start: 20030806, end: 20030916
  5. ALTAT [Concomitant]
  6. PREDNISOLONE [Concomitant]
  7. LORCAM [Concomitant]
  8. VOLTAREN [Concomitant]
  9. RADIATION THERAPY [Concomitant]
  10. CISPLATIN [Concomitant]
  11. UFT [Concomitant]

REACTIONS (5)
  - BRAIN CANCER METASTATIC [None]
  - HERPES ZOSTER [None]
  - LIVER DISORDER [None]
  - PERFORMANCE STATUS DECREASED [None]
  - REFUSAL OF TREATMENT BY PATIENT [None]
